FAERS Safety Report 21508756 (Version 1)
Quarter: 2022Q4

REPORT INFORMATION
  Report Type: Spontaneous
  Country: US (occurrence: US)
  Receive Date: 20221026
  Receipt Date: 20221026
  Transmission Date: 20230112
  Serious: No
  Sender: FDA-Public Use
  Company Number: US-ENDO PHARMACEUTICALS INC-2022-004558

PATIENT
  Sex: Female

DRUGS (3)
  1. QWO [Suspect]
     Active Substance: COLLAGENASE CLOSTRIDIUM HISTOLYTICUM-AAES
     Indication: Cellulite
     Dosage: UNK UNKNOWN, UNKNOWN (FORTY-EIGHT SITES WERE INJECTED ON BUTTOCK AND THIGHS) (TREATMENT ONE)
     Route: 065
     Dates: start: 20220418
  2. QWO [Suspect]
     Active Substance: COLLAGENASE CLOSTRIDIUM HISTOLYTICUM-AAES
     Dosage: UNK UNKNOWN, UNKNOWN (FORTY-EIGHT SITES WERE INJECTED ON BUTTOCK AND THIGHS) (TREATMENT TWO)
     Route: 065
     Dates: start: 20220509
  3. QWO [Suspect]
     Active Substance: COLLAGENASE CLOSTRIDIUM HISTOLYTICUM-AAES
     Dosage: UNK UNKNOWN, UNKNOWN (THIRTY-SIX TREATMENTS TO BUTTOCK AND THIGHS) (TREATMENT THREE)
     Route: 065
     Dates: start: 20220610

REACTIONS (6)
  - Contusion [Unknown]
  - Injection site discolouration [Unknown]
  - Drug ineffective [Unknown]
  - Inappropriate schedule of product administration [Recovered/Resolved]
  - Product preparation issue [Unknown]
  - Off label use [Unknown]

NARRATIVE: CASE EVENT DATE: 20220101
